FAERS Safety Report 5738950-6 (Version None)
Quarter: 2008Q2

REPORT INFORMATION
  Report Type: 
  Country: None (occurrence: None)
  Receive Date: 20080515
  Receipt Date: 20080507
  Transmission Date: 20081010
  Serious: Yes (Life-Threatening, Hospitalization)
  Sender: FDA-Public Use
  Company Number: DE-WYE-H03988608

PATIENT
  Age: 66 Year
  Sex: Female

DRUGS (8)
  1. CEFIXIME CHEWABLE [Suspect]
     Route: 048
     Dates: start: 20080131, end: 20080201
  2. SPIRIVA [Concomitant]
     Dosage: UNKNOWN
  3. DICLOFENAC [Concomitant]
     Dosage: 50 MG
  4. FORMOTEROL [Concomitant]
     Dosage: 12 UG
     Route: 055
  5. L-THYROXIN [Concomitant]
     Dosage: ^150^
     Route: 048
  6. BERODUAL [Concomitant]
     Dosage: UNKNOWN
     Route: 055
  7. SOTAHEXAL [Concomitant]
     Dosage: 160 MG
     Route: 048
  8. BUDES [Concomitant]
     Dosage: UNKNOWN
     Route: 055

REACTIONS (4)
  - CARDIAC ARREST [None]
  - CIRCULATORY COLLAPSE [None]
  - HYPERSENSITIVITY [None]
  - OEDEMA [None]
